APPROVED DRUG PRODUCT: VIRACEPT
Active Ingredient: NELFINAVIR MESYLATE
Strength: EQ 625MG BASE
Dosage Form/Route: TABLET;ORAL
Application: N021503 | Product #001
Applicant: AGOURON PHARMACEUTICALS LLC
Approved: Apr 30, 2003 | RLD: Yes | RS: Yes | Type: RX